FAERS Safety Report 20329821 (Version 5)
Quarter: 2022Q1

REPORT INFORMATION
  Report Type: Spontaneous
  Country: AR (occurrence: AR)
  Receive Date: 20220112
  Receipt Date: 20220307
  Transmission Date: 20220423
  Serious: Yes (Other)
  Sender: FDA-Public Use
  Company Number: AR-PFIZER INC-202200004045

PATIENT
  Age: 64 Year
  Sex: Female

DRUGS (2)
  1. ENBREL [Suspect]
     Active Substance: ETANERCEPT
     Indication: Rheumatoid arthritis
     Dosage: EVERY 15 DAYS
     Route: 065
     Dates: start: 20160101
  2. ENBREL [Suspect]
     Active Substance: ETANERCEPT
     Dosage: EVERY 15 DAYS
     Route: 065
     Dates: start: 20160101

REACTIONS (6)
  - Fall [Not Recovered/Not Resolved]
  - Upper limb fracture [Not Recovered/Not Resolved]
  - Limb discomfort [Not Recovered/Not Resolved]
  - Bone disorder [Not Recovered/Not Resolved]
  - Off label use [Unknown]
  - Mobility decreased [Not Recovered/Not Resolved]

NARRATIVE: CASE EVENT DATE: 20160101
